FAERS Safety Report 8103928-4 (Version None)
Quarter: 2012Q1

REPORT INFORMATION
  Report Type: 
  Country: None (occurrence: None)
  Receive Date: 20120201
  Receipt Date: 20120121
  Transmission Date: 20120608
  Serious: Yes (Hospitalization, Other)
  Sender: FDA-Public Use
  Company Number: US-BAYER-2011-046333

PATIENT
  Age: 21 Year
  Sex: Female
  Weight: 57.143 kg

DRUGS (3)
  1. ZOMIG [Concomitant]
     Dosage: 25 MG, UNK
  2. VERAPAMIL [Concomitant]
     Indication: MIGRAINE PROPHYLAXIS
     Dosage: UNK
     Dates: start: 20090620, end: 20090622
  3. YAZ [Suspect]
     Indication: CONTRACEPTION
     Dosage: UNK
     Dates: start: 20070601, end: 20090601

REACTIONS (14)
  - THROMBOSIS [None]
  - CEREBROVASCULAR ACCIDENT [None]
  - HYPOAESTHESIA [None]
  - ABASIA [None]
  - MUSCULAR WEAKNESS [None]
  - DIZZINESS [None]
  - VISION BLURRED [None]
  - PAIN IN EXTREMITY [None]
  - SENSATION OF HEAVINESS [None]
  - TRANSIENT ISCHAEMIC ATTACK [None]
  - CEREBRAL INFARCTION [None]
  - HEADACHE [None]
  - PAIN [None]
  - TACHYCARDIA [None]
